FAERS Safety Report 21221199 (Version 1)
Quarter: 2022Q3

REPORT INFORMATION
  Report Type: Report from Study
  Country: US (occurrence: US)
  Receive Date: 20220817
  Receipt Date: 20220817
  Transmission Date: 20221026
  Serious: No
  Sender: FDA-Public Use
  Company Number: US-BIOVITRUM-2022US09136

PATIENT
  Sex: Female

DRUGS (13)
  1. KINERET [Suspect]
     Active Substance: ANAKINRA
     Indication: Product used for unknown indication
     Dates: start: 20220720
  2. FENTANYL [Concomitant]
     Active Substance: FENTANYL
     Dosage: PATCH
  3. RISPERIDONE [Concomitant]
     Active Substance: RISPERIDONE
  4. MAGNESIUM [Concomitant]
     Active Substance: MAGNESIUM
  5. FOLIC ACID [Concomitant]
     Active Substance: FOLIC ACID
  6. DEPAKOTE [Concomitant]
     Active Substance: DIVALPROEX SODIUM
  7. LEFLUNOMIDE [Concomitant]
     Active Substance: LEFLUNOMIDE
  8. XANAX [Concomitant]
     Active Substance: ALPRAZOLAM
  9. VITAMINS NOS [Concomitant]
     Active Substance: VITAMINS
  10. METHOTREXATE [Concomitant]
     Active Substance: METHOTREXATE
  11. POTASSIUM [Concomitant]
     Active Substance: POTASSIUM
  12. LASIX [Concomitant]
     Active Substance: FUROSEMIDE
  13. ERGOCALCIFEROL [Concomitant]
     Active Substance: ERGOCALCIFEROL

REACTIONS (6)
  - Erythema [Unknown]
  - Skin discolouration [Unknown]
  - Swelling [Unknown]
  - Injection site pain [Recovered/Resolved]
  - Injection site pruritus [Unknown]
  - Injection site erythema [Unknown]
